FAERS Safety Report 9841169 (Version 1)
Quarter: 2013Q4

REPORT INFORMATION
  Report Type: Spontaneous
  Country: US (occurrence: None)
  Receive Date: 20131212
  Receipt Date: 20131212
  Transmission Date: 20140711
  Serious: Yes (Hospitalization)
  Sender: FDA-Public Use
  Company Number: 20121121CINRY3700

PATIENT
  Age: 29 Year
  Sex: 0

DRUGS (2)
  1. CINRYZE (C1 ESTERASE INHIBITOR (HUMAN)) [Suspect]
     Indication: HEREDITARY ANGIOEDEMA
     Dosage: 1000 UNIT, EVERY 3-4 DAYS
     Route: 042
     Dates: start: 20100507
  2. CINRYZE (C1 ESTERASE INHIBITOR (HUMAN)) [Suspect]
     Indication: PROPHYLAXIS
     Dosage: 1000 UNIT, EVERY 3-4 DAYS
     Route: 042
     Dates: start: 20100507

REACTIONS (1)
  - Hereditary angioedema [None]
